FAERS Safety Report 23320420 (Version 4)
Quarter: 2024Q1

REPORT INFORMATION
  Report Type: Spontaneous
  Country: US (occurrence: US)
  Receive Date: 20231220
  Receipt Date: 20240319
  Transmission Date: 20240410
  Serious: Yes (Other)
  Sender: FDA-Public Use
  Company Number: US-PFIZER INC-PV202300200943

PATIENT
  Age: 77 Year
  Sex: Female
  Weight: 68.03 kg

DRUGS (1)
  1. XELJANZ XR [Suspect]
     Active Substance: TOFACITINIB CITRATE
     Indication: Rheumatoid arthritis
     Dosage: 11 MG, DAILY
     Dates: start: 2019

REACTIONS (3)
  - Dry age-related macular degeneration [Unknown]
  - Eye disorder [Unknown]
  - Visual impairment [Unknown]
